FAERS Safety Report 4695419-8 (Version None)
Quarter: 2005Q2

REPORT INFORMATION
  Report Type: 
  Country: None (occurrence: None)
  Receive Date: 20050620
  Receipt Date: 20050620
  Transmission Date: 20051028
  Serious: Yes (Life-Threatening, Hospitalization)
  Sender: FDA-Public Use
  Company Number: None

PATIENT
  Age: 69 Year
  Sex: Male
  Weight: 57 kg

DRUGS (8)
  1. DIGOXIN [Suspect]
     Indication: THERAPEUTIC AGENT TOXICITY
     Dosage: 0.125 QD PO
     Route: 048
  2. ATENLOL [Concomitant]
  3. LASIX [Concomitant]
  4. DIGOXIN [Concomitant]
  5. PREDNISONE [Concomitant]
  6. WARFARIN [Concomitant]
  7. INSULIN [Concomitant]
  8. OMEPRAZOLE [Concomitant]

REACTIONS (9)
  - ABDOMINAL PAIN UPPER [None]
  - ARRHYTHMIA [None]
  - BLOOD PRESSURE DECREASED [None]
  - HEART RATE DECREASED [None]
  - OBSTRUCTIVE AIRWAYS DISORDER [None]
  - PALPITATIONS [None]
  - SINUS ARREST [None]
  - TACHYPNOEA [None]
  - VOMITING [None]
